FAERS Safety Report 5807337-X (Version None)
Quarter: 2008Q3

REPORT INFORMATION
  Report Type: 
  Country: None (occurrence: None)
  Receive Date: 20080709
  Receipt Date: 20080709
  Transmission Date: 20090109
  Serious: No
  Sender: FDA-Public Use
  Company Number: None

PATIENT
  Sex: Female
  Weight: 113.3993 kg

DRUGS (2)
  1. LEVAQUIN [Suspect]
     Indication: EAR INFECTION
     Dosage: PO
     Route: 048
  2. CIPRO [Suspect]
     Indication: EYE INFECTION
     Route: 047

REACTIONS (3)
  - ARTHRALGIA [None]
  - INSOMNIA [None]
  - TENDONITIS [None]
